FAERS Safety Report 9681696 (Version 1)
Quarter: 2013Q4

REPORT INFORMATION
  Report Type: Spontaneous
  Country: ES (occurrence: ES)
  Receive Date: 20131111
  Receipt Date: 20131111
  Transmission Date: 20140711
  Serious: Yes (Death)
  Sender: FDA-Public Use
  Company Number: ES-009507513-1311ESP000350

PATIENT
  Age: 83 Year
  Sex: Female

DRUGS (4)
  1. GLACTIV [Suspect]
     Indication: TYPE 2 DIABETES MELLITUS
     Route: 048
  2. METFORMIN HYDROCHLORIDE [Concomitant]
  3. FUROSEMIDE [Concomitant]
  4. ASPIRIN [Concomitant]

REACTIONS (9)
  - Neurological symptom [Fatal]
  - Death [Fatal]
  - Muscular weakness [Unknown]
  - Muscle spasms [Unknown]
  - Primary hyperaldosteronism [Unknown]
  - Oedema [Unknown]
  - Hypokalaemia [Unknown]
  - Metabolic alkalosis [Unknown]
  - Haemorrhagic stroke [Unknown]
